FAERS Safety Report 8598792-3 (Version None)
Quarter: 2012Q3

REPORT INFORMATION
  Report Type: 
  Country: None (occurrence: None)
  Receive Date: 20120816
  Receipt Date: 20120806
  Transmission Date: 20120928
  Serious: Yes (Hospitalization)
  Sender: FDA-Public Use
  Company Number: US-GLAXOSMITHKLINE-A0899228A

PATIENT
  Age: 75 Year
  Sex: Male

DRUGS (1)
  1. AVANDIA [Suspect]
     Indication: DIABETES MELLITUS
     Dosage: 4MG PER DAY
     Route: 048

REACTIONS (6)
  - PAIN [None]
  - CARDIAC DISORDER [None]
  - VISUAL IMPAIRMENT [None]
  - ARTERIOSCLEROSIS [None]
  - CATARACT [None]
  - CEREBROVASCULAR ACCIDENT [None]
